FAERS Safety Report 8088205 (Version 3)
Quarter: 2013Q2

REPORT INFORMATION
  Report Type: Report from Study
  Country: JP (occurrence: JP)
  Receive Date: 20110812
  Receipt Date: 20130401
  Transmission Date: 20140414
  Serious: Yes (Death)
  Sender: FDA-Public Use
  Company Number: JP-ROCHE-795080

PATIENT
  Sex: Male

DRUGS (16)
  1. TOCILIZUMAB [Suspect]
     Indication: CASTLEMAN^S DISEASE
     Route: 041
     Dates: start: 20100604, end: 20100614
  2. TOCILIZUMAB [Suspect]
     Indication: NON-SMALL CELL LUNG CANCER METASTATIC
  3. PREDONINE [Concomitant]
     Indication: NON-SMALL CELL LUNG CANCER METASTATIC
     Route: 041
     Dates: start: 20100427, end: 20100427
  4. PREDONINE [Concomitant]
     Route: 048
     Dates: start: 20100428, end: 20100430
  5. PREDONINE [Concomitant]
     Route: 048
     Dates: start: 20100504, end: 20100505
  6. PREDONINE [Concomitant]
     Route: 048
     Dates: start: 20100506, end: 20100602
  7. PREDONINE [Concomitant]
     Route: 048
     Dates: start: 20100603, end: 20100627
  8. PRIDOL [Concomitant]
     Indication: NON-SMALL CELL LUNG CANCER
     Route: 041
     Dates: start: 20100501, end: 20100503
  9. PRIDOL [Concomitant]
     Route: 041
     Dates: start: 20100628, end: 20100629
  10. PRIDOL [Concomitant]
     Route: 041
     Dates: start: 20100603, end: 20100704
  11. FAMOTIDINE D [Concomitant]
     Indication: PROPHYLAXIS
     Route: 048
     Dates: start: 20100424, end: 20100701
  12. MYSLEE [Concomitant]
     Route: 048
     Dates: start: 20100430, end: 20100701
  13. MAGLAX [Concomitant]
     Route: 048
     Dates: start: 20100513, end: 20100616
  14. BAKTAR [Concomitant]
     Indication: PROPHYLAXIS
     Route: 048
     Dates: start: 20100506, end: 20100701
  15. THYRADIN-S [Concomitant]
     Route: 048
     Dates: start: 20100609, end: 20100701
  16. BONALON [Concomitant]
     Indication: PROPHYLAXIS
     Route: 048
     Dates: start: 20100521, end: 20100625

REACTIONS (2)
  - Large cell lung cancer [Fatal]
  - Disease progression [Fatal]
